FAERS Safety Report 7331559-2 (Version None)
Quarter: 2011Q1

REPORT INFORMATION
  Report Type: 
  Country: None (occurrence: None)
  Receive Date: 20110228
  Receipt Date: 20110228
  Transmission Date: 20110831
  Serious: Yes (Hospitalization, Disabling)
  Sender: FDA-Public Use
  Company Number: None

PATIENT
  Age: 16 Year
  Sex: Male
  Weight: 77 kg

DRUGS (4)
  1. ASPIRIN [Suspect]
  2. APAP TAB [Suspect]
  3. SINGULAIR [Suspect]
     Indication: ASTHMA
  4. DIPHENHYDRAMINE HCL [Suspect]

REACTIONS (3)
  - SUICIDE ATTEMPT [None]
  - LACERATION [None]
  - INTENTIONAL SELF-INJURY [None]
